FAERS Safety Report 5389570-7 (Version None)
Quarter: 2007Q3

REPORT INFORMATION
  Report Type: 
  Country: None (occurrence: None)
  Receive Date: 20070713
  Receipt Date: 20070704
  Transmission Date: 20080115
  Serious: Yes (Hospitalization)
  Sender: FDA-Public Use
  Company Number: 2007SP013664

PATIENT
  Age: 34 Year
  Sex: Male

DRUGS (2)
  1. TEMOZOLOMIDE [Suspect]
     Indication: MALIGNANT GLIOMA
     Dosage: 440 MG; QD;
     Dates: start: 20070618, end: 20070622
  2. TEMOZOLOMIDE [Suspect]
     Indication: NEOPLASM RECURRENCE
     Dosage: 440 MG; QD;
     Dates: start: 20070618, end: 20070622

REACTIONS (5)
  - COORDINATION ABNORMAL [None]
  - DYSPHASIA [None]
  - HYPOAESTHESIA [None]
  - NEUROPATHY [None]
  - SPEECH DISORDER [None]
